FAERS Safety Report 9801395 (Version 1)
Quarter: 2014Q1

REPORT INFORMATION
  Report Type: Spontaneous
  Country: GB (occurrence: GB)
  Receive Date: 20140107
  Receipt Date: 20140107
  Transmission Date: 20141002
  Serious: Yes (Hospitalization, Disabling)
  Sender: FDA-Public Use
  Company Number: GB-WATSON-2013-24029

PATIENT
  Age: 53 Year
  Sex: 0

DRUGS (2)
  1. OMEPRAZOLE (UNKNOWN) [Suspect]
     Indication: PRODUCT USED FOR UNKNOWN INDICATION
     Dosage: UNK
     Route: 048
  2. TAZOCIN [Suspect]
     Indication: PANCREATITIS NECROTISING
     Dosage: UNK
     Route: 042
     Dates: start: 20111223, end: 20111230

REACTIONS (1)
  - Clostridium difficile infection [Recovered/Resolved]
